FAERS Safety Report 10519060 (Version 1)
Quarter: 2014Q4

REPORT INFORMATION
  Report Type: Spontaneous
  Country: ES (occurrence: ES)
  Receive Date: 20141015
  Receipt Date: 20141015
  Transmission Date: 20150528
  Serious: Yes (Hospitalization)
  Sender: FDA-Public Use
  Company Number: ES-SA-2014SA136571

PATIENT
  Age: 76 Year
  Sex: Male

DRUGS (10)
  1. PROSCAR [Concomitant]
     Active Substance: FINASTERIDE
     Indication: HYPERTENSION
     Dosage: 1-0-0
     Route: 048
  2. METAMIZOLE [Concomitant]
     Active Substance: METAMIZOLE
     Indication: FEMUR FRACTURE
     Dosage: 2GR/8H
     Route: 042
     Dates: start: 20131015, end: 20131029
  3. SINTROM [Interacting]
     Active Substance: ACENOCOUMAROL
     Dosage: SP
     Route: 048
     Dates: start: 2007, end: 20131101
  4. ALDACTONE [Concomitant]
     Active Substance: SPIRONOLACTONE
     Dosage: 1CP
     Route: 048
  5. NOVOMIX [Concomitant]
     Active Substance: INSULIN ASPART
     Indication: TYPE 2 DIABETES MELLITUS
     Dosage: 30-0-32
     Route: 058
     Dates: start: 2011
  6. CLEXANE [Suspect]
     Active Substance: ENOXAPARIN SODIUM
     Dosage: 40 MG
     Route: 058
     Dates: start: 20131015, end: 20131102
  7. OMEPRAZOLE. [Concomitant]
     Active Substance: OMEPRAZOLE
     Indication: HYPERTENSION
     Dosage: 5MG/12H
     Route: 048
  8. PANTOPRAZOLE [Concomitant]
     Active Substance: PANTOPRAZOLE SODIUM
     Indication: PROPHYLAXIS AGAINST GASTROINTESTINAL ULCER
     Dosage: 1CP
     Route: 048
     Dates: start: 20131015, end: 20131101
  9. PARACETAMOL [Concomitant]
     Active Substance: ACETAMINOPHEN
     Indication: PAIN
     Dosage: 1GR/6H
     Route: 042
     Dates: start: 20131015, end: 20131101
  10. DEXKETOPROFEN [Interacting]
     Active Substance: DEXKETOPROFEN
     Indication: PAIN
     Dosage: 50 MG DU
     Route: 042
     Dates: start: 20131016, end: 20131016

REACTIONS (2)
  - Anaemia [Recovered/Resolved]
  - Duodenal ulcer [Recovered/Resolved]

NARRATIVE: CASE EVENT DATE: 20131105
